FAERS Safety Report 11972952 (Version 1)
Quarter: 2016Q1

REPORT INFORMATION
  Report Type: Spontaneous
  Country: CH (occurrence: CH)
  Receive Date: 20160128
  Receipt Date: 20160128
  Transmission Date: 20160526
  Serious: Yes (Hospitalization, Other)
  Sender: FDA-Public Use
  Company Number: CH-009507513-1511CHE003376

PATIENT
  Sex: Male
  Weight: 80 kg

DRUGS (4)
  1. GALVUMET [Concomitant]
     Active Substance: METFORMIN HYDROCHLORIDE\VILDAGLIPTIN
     Indication: TYPE 2 DIABETES MELLITUS
     Dosage: STRENGTH REPORTED AS 50/1000 (UNITS NOT PROVIDED), DOSE: 50/1000 BID
     Route: 048
     Dates: start: 20110211, end: 201511
  2. INEGY [Suspect]
     Active Substance: EZETIMIBE\SIMVASTATIN
     Indication: HYPERCHOLESTEROLAEMIA
     Dosage: STRENGTH REPORTED AS 10/40 (UNITS NOT PROVIDED), DAILY
     Route: 048
     Dates: start: 20110211, end: 201411
  3. OPTIFEN (IBUPROFEN) [Concomitant]
     Indication: ARTHRALGIA
     Dosage: STRENGTH REPORTED AS 600 (UNITS NOT PROVIDED), DOSE: 600 (UNITS NOT PROVIDED) DAILY
     Route: 048
     Dates: start: 20110211, end: 201511
  4. COAPROVEL [Concomitant]
     Active Substance: HYDROCHLOROTHIAZIDE\IRBESARTAN
     Indication: HYPERTENSION
     Dosage: STRENGTH REPORTED AS 150/12.5 (UNITS NOT PROVIDED), DOSE: 150/12.5 DAILY
     Route: 048
     Dates: start: 20110211, end: 201511

REACTIONS (7)
  - Acute myocardial infarction [Recovered/Resolved]
  - Drug ineffective [Not Recovered/Not Resolved]
  - Blood cholesterol increased [Unknown]
  - Glycosylated haemoglobin increased [Unknown]
  - High density lipoprotein decreased [Unknown]
  - Blood triglycerides increased [Unknown]
  - Glycosylated haemoglobin increased [Unknown]

NARRATIVE: CASE EVENT DATE: 20110527
